FAERS Safety Report 6557229-6 (Version None)
Quarter: 2010Q1

REPORT INFORMATION
  Report Type: 
  Country: None (occurrence: None)
  Receive Date: 20100127
  Receipt Date: 20100127
  Transmission Date: 20100710
  Serious: No
  Sender: FDA-Public Use
  Company Number: None

PATIENT
  Age: 59 Year
  Sex: Male

DRUGS (1)
  1. XYLOCAINE [Suspect]
     Dosage: USED DURING ONE SURGERY
     Dates: start: 20100122, end: 20100122

REACTIONS (1)
  - DRUG EFFECT DECREASED [None]
